FAERS Safety Report 6849325-0 (Version None)
Quarter: 2010Q3

REPORT INFORMATION
  Report Type: 
  Country: None (occurrence: None)
  Receive Date: 20100716
  Receipt Date: 20080214
  Transmission Date: 20110219
  Serious: No
  Sender: FDA-Public Use
  Company Number: US-PFIZER INC-2007082635

PATIENT
  Sex: Female
  Weight: 77.272 kg

DRUGS (7)
  1. CHANTIX [Suspect]
     Indication: SMOKING CESSATION THERAPY
     Route: 048
     Dates: start: 20070901
  2. DIOVANE [Concomitant]
  3. MECLOZINE HYDROCHLORIDE [Concomitant]
  4. ADVAIR DISKUS 100/50 [Concomitant]
  5. VICODIN [Concomitant]
  6. WARFARIN SODIUM [Concomitant]
  7. THYROID TAB [Concomitant]

REACTIONS (1)
  - NAUSEA [None]
